FAERS Safety Report 24835259 (Version 2)
Quarter: 2025Q1

REPORT INFORMATION
  Report Type: Spontaneous
  Country: US (occurrence: US)
  Receive Date: 20250113
  Receipt Date: 20250124
  Transmission Date: 20250408
  Serious: Yes (Hospitalization, Other)
  Sender: TEVA
  Company Number: US-TEVA-VS-3285184

PATIENT
  Age: 77 Year
  Sex: Male

DRUGS (4)
  1. GEMCITABINE [Suspect]
     Active Substance: GEMCITABINE
     Indication: Ductal adenocarcinoma of pancreas
     Route: 065
     Dates: start: 201808
  2. FLUOROURACIL [Suspect]
     Active Substance: FLUOROURACIL
     Indication: Ductal adenocarcinoma of pancreas
     Route: 065
     Dates: start: 201904
  3. PACLITAXEL [Suspect]
     Active Substance: PACLITAXEL
     Indication: Ductal adenocarcinoma of pancreas
     Route: 065
     Dates: start: 201808
  4. CAPECITABINE [Suspect]
     Active Substance: CAPECITABINE
     Indication: Ductal adenocarcinoma of pancreas
     Route: 065

REACTIONS (4)
  - Leukopenia [Unknown]
  - Cellulitis [Unknown]
  - Anaemia [Unknown]
  - Drug ineffective [Unknown]
